FAERS Safety Report 4591040-0 (Version None)
Quarter: 2005Q1

REPORT INFORMATION
  Report Type: 
  Country: None (occurrence: None)
  Receive Date: 20050222
  Receipt Date: 20050222
  Transmission Date: 20050727
  Serious: Yes (Other)
  Sender: FDA-Public Use
  Company Number: None

PATIENT
  Age: 56 Year
  Sex: Male
  Weight: 60.782 kg

DRUGS (5)
  1. LORAZEPAM [Suspect]
     Indication: MYOCLONIC EPILEPSY
     Dosage: 1 TAB AS NEEDED, NOT TO EXCEED 2 TABS/DAY
     Dates: start: 20050101, end: 20050201
  2. MULTI-VITAMIN [Concomitant]
  3. FOLIC ACID [Concomitant]
  4. DILANTIN [Concomitant]
  5. TOPAMAX [Concomitant]

REACTIONS (4)
  - CONDITION AGGRAVATED [None]
  - CONVULSION [None]
  - DRUG INEFFECTIVE [None]
  - PHARMACEUTICAL PRODUCT COMPLAINT [None]
